FAERS Safety Report 8612627 (Version 3)
Quarter: 2012Q4

REPORT INFORMATION
  Report Type: 
  Country: US (occurrence: US)
  Receive Date: 20120613
  Receipt Date: 20120904
  Transmission Date: 20130627
  Serious: Yes (Hospitalization, Other)
  Sender: FDA-Public Use
  Company Number: US-PFIZER INC-2012137306

PATIENT
  Age: 43 Year
  Sex: Male
  Weight: 61.22 kg

DRUGS (6)
  1. SUTENT [Suspect]
     Indication: METASTATIC RENAL CELL CARCINOMA
     Dosage: 50 mg, for 42 day cycle (cycle 1)
     Dates: start: 20120519, end: 20120615
  2. SUTENT [Suspect]
     Dosage: cycle 2
     Dates: start: 20120630, end: 20120705
  3. SUTENT [Suspect]
     Dosage: 50 mg, UNK
     Dates: start: 20120821
  4. IMURAN [Concomitant]
     Indication: RENAL TRANSPLANT
     Dosage: UNK
  5. PREDNISONE [Concomitant]
     Indication: RENAL TRANSPLANT
     Dosage: UNK
  6. LACTAID [Concomitant]
     Indication: LACTOSE INTOLERANCE

REACTIONS (11)
  - Diverticulitis intestinal haemorrhagic [Recovered/Resolved]
  - Pulmonary thrombosis [Unknown]
  - Dyspnoea [Unknown]
  - Anaemia [Unknown]
  - Bone pain [Unknown]
  - Eructation [Unknown]
  - Flatulence [Unknown]
  - Diarrhoea [Unknown]
  - Hyperchlorhydria [Unknown]
  - Weight decreased [Unknown]
  - Aneurysm [Unknown]
